FAERS Safety Report 4331253-6 (Version None)
Quarter: 2004Q1

REPORT INFORMATION
  Report Type: 
  Country: None (occurrence: None)
  Receive Date: 20040331
  Receipt Date: 20040319
  Transmission Date: 20041129
  Serious: Yes (Death, Hospitalization)
  Sender: FDA-Public Use
  Company Number: K200400408

PATIENT
  Age: 81 Year
  Sex: Male

DRUGS (6)
  1. ALTACE [Suspect]
     Dosage: 5 MG, QD, ORAL
     Route: 048
     Dates: start: 20030615, end: 20040201
  2. FUROSEMIDE [Suspect]
     Dosage: SEE IMAGE
     Route: 048
     Dates: start: 20030615
  3. CIPROFLOXACIN [Suspect]
     Dosage: 375 MG,  BID, ORAL
     Route: 048
     Dates: start: 20040201, end: 20040220
  4. CELEBREX [Suspect]
     Dosage: 1 U, QD, ORAL
     Route: 048
     Dates: start: 20030615, end: 20040128
  5. AUGMENTIN '250' [Suspect]
     Dosage: QD,ORAL
     Route: 048
  6. NOZINAN (LEVOMEPROMAZINE) [Concomitant]

REACTIONS (12)
  - CARDIAC FAILURE [None]
  - DEHYDRATION [None]
  - DIALYSIS [None]
  - HYPERKALAEMIA [None]
  - HYPONATRAEMIA [None]
  - HYPOTENSION [None]
  - INFECTION [None]
  - LUNG DISORDER [None]
  - RENAL FAILURE ACUTE [None]
  - RESPIRATORY FAILURE [None]
  - SEPSIS [None]
  - SOMNOLENCE [None]
